FAERS Safety Report 5886808-4 (Version None)
Quarter: 2008Q3

REPORT INFORMATION
  Report Type: 
  Country: None (occurrence: None)
  Receive Date: 20080917
  Receipt Date: 20080913
  Transmission Date: 20090109
  Serious: Yes (Death, Hospitalization)
  Sender: FDA-Public Use
  Company Number: SE-ABBOTT-08P-150-0471075-00

PATIENT
  Age: 74 Year
  Sex: Male
  Weight: 79.1 kg

DRUGS (20)
  1. ZEMPLAR [Suspect]
     Indication: HYPERPARATHYROIDISM SECONDARY
     Dosage: 5MCG/ML, 4ML/WEEK
     Route: 050
     Dates: start: 20080324
  2. DIMETICONE, ACTIVATED [Concomitant]
     Indication: GASTRIC DISORDER
     Route: 048
     Dates: start: 20080523
  3. INSULIN HUMAN [Concomitant]
     Indication: BLOOD GLUCOSE INCREASED
     Dosage: 100 U/ML, PENFILL
     Route: 058
     Dates: start: 20080523
  4. INSULIN GLARGINE [Concomitant]
     Indication: BLOOD GLUCOSE INCREASED
     Dosage: 100 U/ML, PRE-FILLED PEN
     Route: 058
     Dates: start: 20080523
  5. PARENTROVITE [Concomitant]
     Indication: VITAMIN SUPPLEMENTATION
     Dosage: 1X1
     Route: 048
     Dates: start: 20080523
  6. VITAMIN E [Concomitant]
     Indication: VITAMIN SUPPLEMENTATION
     Route: 048
     Dates: start: 20080523
  7. CALCIUM CARBONATE [Concomitant]
     Indication: SUPPLEMENTATION THERAPY
     Route: 048
     Dates: start: 20080523
  8. CLOPIDOGREL [Concomitant]
     Indication: THROMBOSIS PROPHYLAXIS
     Dosage: FILM-COATED TABLET ONCE DAILY
     Route: 048
     Dates: start: 20080523
  9. ACETYL SALICYLIC ACID COMPOUND TAB [Concomitant]
     Indication: BLOOD DISORDER
     Route: 048
     Dates: start: 20080523
  10. FOLACIN [Concomitant]
     Indication: VITAMIN SUPPLEMENTATION
     Route: 048
     Dates: start: 20080523
  11. METOPROLOL SANDOZ DEPOT TABLET [Concomitant]
     Indication: CARDIAC DISORDER
     Route: 048
     Dates: start: 20080523
  12. CINACALCET [Concomitant]
     Indication: MINERAL SUPPLEMENTATION
     Dosage: FILM-COATED TABLET ONCE DAILY
     Route: 048
     Dates: start: 20080523
  13. FLUCONAZOLE [Concomitant]
     Indication: FUNGAL INFECTION
     Dosage: 1 CAP AFTER DIALYSIS
     Route: 048
     Dates: start: 20080812, end: 20080819
  14. ACETAMINOPHEN [Concomitant]
     Indication: ANALGESIA
     Dosage: 1-2 TABS WHEN NEEDED
     Route: 048
     Dates: start: 20080523
  15. ENOXAPARIN SODIUM [Concomitant]
     Indication: DRUG USE FOR UNKNOWN INDICATION
     Dosage: 100000 U/ML, 4500 U/ML
     Route: 050
  16. ERYTHROPOIETIN HUMAN [Concomitant]
     Indication: DRUG USE FOR UNKNOWN INDICATION
     Dosage: 100000/5 ML, 6000 ONCE WEEKLY
     Route: 050
  17. VENOTER [Concomitant]
     Indication: DRUG USE FOR UNKNOWN INDICATION
     Dosage: EVEN WEEKS
     Route: 050
  18. ACTILYSE IN HEMAPORT [Concomitant]
     Indication: DRUG USE FOR UNKNOWN INDICATION
     Dosage: 1 MG/ML, A.2.8 ML, V.3.0 ML
     Route: 050
  19. TOBRAMYCIN [Concomitant]
     Indication: DRUG USE FOR UNKNOWN INDICATION
     Dosage: MO/TU 40 MG, WE/TH 60 MG, FR/SA/SUN 40 MG
     Route: 050
  20. IMP...S...DEPOT [Concomitant]
     Indication: DRUG USE FOR UNKNOWN INDICATION
     Route: 048

REACTIONS (14)
  - ARRHYTHMIA [None]
  - BLOOD GLUCOSE INCREASED [None]
  - CEREBROVASCULAR ACCIDENT [None]
  - COUGH [None]
  - EXERCISE TOLERANCE DECREASED [None]
  - FATIGUE [None]
  - FOOT FRACTURE [None]
  - GANGRENE [None]
  - IMPAIRED HEALING [None]
  - LOCALISED INFECTION [None]
  - NAUSEA [None]
  - RESORPTION BONE INCREASED [None]
  - RESPIRATORY MONILIASIS [None]
  - VOMITING [None]
